FAERS Safety Report 13806038 (Version 1)
Quarter: 2017Q3

REPORT INFORMATION
  Report Type: Spontaneous
  Country: US (occurrence: US)
  Receive Date: 20170728
  Receipt Date: 20170728
  Transmission Date: 20171127
  Serious: No
  Sender: FDA-Public Use
  Company Number: US-GLAXOSMITHKLINE-US2017GSK114957

PATIENT
  Sex: Female
  Weight: 81.63 kg

DRUGS (6)
  1. GABAPENTIN. [Concomitant]
     Active Substance: GABAPENTIN
  2. ROPINIROLE TABLET [Suspect]
     Active Substance: ROPINIROLE
     Indication: RESTLESS LEGS SYNDROME
     Dosage: UNK UNK, QD
  3. PERCOCET [Concomitant]
     Active Substance: ACETAMINOPHEN\OXYCODONE HYDROCHLORIDE
  4. METOPROLOL. [Concomitant]
     Active Substance: METOPROLOL
  5. NORVASC [Concomitant]
     Active Substance: AMLODIPINE BESYLATE
  6. FENTANYL. [Concomitant]
     Active Substance: FENTANYL

REACTIONS (2)
  - Therapeutic response decreased [Unknown]
  - Intentional product use issue [Unknown]
